FAERS Safety Report 11257838 (Version 2)
Quarter: 2015Q3

REPORT INFORMATION
  Report Type: Spontaneous
  Country: AT (occurrence: AT)
  Receive Date: 20150710
  Receipt Date: 20150720
  Transmission Date: 20151125
  Serious: Yes (Death, Hospitalization, Other)
  Sender: FDA-Public Use
  Company Number: AT-AMGEN-AUTSP2015067277

PATIENT
  Sex: Female

DRUGS (2)
  1. VITAMIN D                          /00107901/ [Concomitant]
     Active Substance: ERGOCALCIFEROL
     Dosage: UNK
  2. PROLIA [Suspect]
     Active Substance: DENOSUMAB
     Indication: OSTEOPOROSIS
     Dosage: UNK
     Route: 065

REACTIONS (8)
  - Postoperative adhesion [Unknown]
  - Death [Fatal]
  - Hypocalcaemia [Recovering/Resolving]
  - Hyperparathyroidism [Recovering/Resolving]
  - Hypomagnesaemia [Recovering/Resolving]
  - Ileus [Unknown]
  - Enterostomy [Unknown]
  - Hypokalaemia [Recovering/Resolving]
